FAERS Safety Report 15803751 (Version 2)
Quarter: 2019Q1

REPORT INFORMATION
  Report Type: Spontaneous
  Country: US (occurrence: US)
  Receive Date: 20190109
  Receipt Date: 20190111
  Transmission Date: 20190417
  Serious: No
  Sender: FDA-Public Use
  Company Number: US-TEVA-2018-US-987704

PATIENT
  Age: 58 Year
  Sex: Female

DRUGS (2)
  1. BUPRENORPHINE SUBLINGUAL MYLAN [Suspect]
     Active Substance: BUPRENORPHINE
     Route: 060
  2. BUPRENORPHINE SUBLINGUAL TEVA [Suspect]
     Active Substance: BUPRENORPHINE
     Route: 060

REACTIONS (4)
  - Nausea [Unknown]
  - Hypoaesthesia oral [Not Recovered/Not Resolved]
  - Ill-defined disorder [Unknown]
  - Drug ineffective [Unknown]
